FAERS Safety Report 9579494 (Version 2)
Quarter: 2013Q4

REPORT INFORMATION
  Report Type: Spontaneous
  Country: US (occurrence: US)
  Receive Date: 20131001
  Receipt Date: 20131001
  Transmission Date: 20140711
  Serious: No
  Sender: FDA-Public Use
  Company Number: US-AMGEN-USASP2013014357

PATIENT
  Age: 55 Year
  Sex: Female
  Weight: 49.89 kg

DRUGS (11)
  1. ENBREL [Suspect]
     Indication: PRODUCT USED FOR UNKNOWN INDICATION
     Dosage: 50 MG, ONCE A WEEK
     Route: 058
     Dates: start: 201301
  2. METHOTREXATE [Concomitant]
     Dosage: 2.5 MG, UNK
  3. FOLIC ACID [Concomitant]
     Dosage: UNK
  4. INDERAL [Concomitant]
     Dosage: 10 MG, UNK
  5. ZANAFLEX [Concomitant]
     Dosage: 2 MG, UNK
  6. TRAMADOL HCL [Concomitant]
     Dosage: 50 MG, UNK
  7. ZYRTEC [Concomitant]
     Dosage: 10 MG, UNK
  8. LUNESTA [Concomitant]
     Dosage: 1 MG, UNK
  9. TRAZODONE                          /00447702/ [Concomitant]
     Dosage: 50 MG, UNK
  10. BENADRYL                           /00000402/ [Concomitant]
     Dosage: 25 MG, UNK
  11. TYLENOL WITH CODEIN #3 [Concomitant]
     Dosage: 325 MG, UNK

REACTIONS (8)
  - Depression [Unknown]
  - Joint injury [Unknown]
  - Toothache [Unknown]
  - Sinusitis [Unknown]
  - Bone pain [Unknown]
  - Contusion [Unknown]
  - Fatigue [Unknown]
  - Anaemia [Unknown]
